FAERS Safety Report 5885709-5 (Version None)
Quarter: 2008Q3

REPORT INFORMATION
  Report Type: 
  Country: None (occurrence: None)
  Receive Date: 20080912
  Receipt Date: 20080829
  Transmission Date: 20090109
  Serious: Yes (Other)
  Sender: FDA-Public Use
  Company Number: CAP08000275

PATIENT
  Age: 77 Year
  Sex: Female

DRUGS (7)
  1. ACTONEL [Suspect]
     Indication: OSTEOPOROSIS
     Dosage: 35 MG ONCE WEEKLY, ORAL
     Route: 048
     Dates: start: 19930101, end: 20060101
  2. ADVAIR DISKUS 100/50 [Concomitant]
  3. VENTOLIN  /00139501/(SALBUTAMOL) [Concomitant]
  4. SYNTHROID [Concomitant]
  5. LIPITOR [Concomitant]
  6. ERGOCALCIFEROL [Concomitant]
  7. CALIUM (CALCIUM) [Concomitant]

REACTIONS (2)
  - GLAUCOMA [None]
  - TOOTH EXTRACTION [None]
